FAERS Safety Report 23687099 (Version 2)
Quarter: 2024Q3

REPORT INFORMATION
  Report Type: Spontaneous
  Country: US (occurrence: US)
  Receive Date: 20240329
  Receipt Date: 20240726
  Transmission Date: 20241016
  Serious: Yes (Other)
  Sender: BIOCODEX
  Company Number: US-BIOCODEX2-2024000440

PATIENT
  Sex: Female
  Weight: 36.8 kg

DRUGS (2)
  1. DIACOMIT [Suspect]
     Active Substance: STIRIPENTOL
     Indication: Lennox-Gastaut syndrome
     Dosage: 500 AND 750MG IN TWO ?SEPARATE DOSES EACH DAY
     Route: 048
     Dates: start: 20230109
  2. DIACOMIT [Suspect]
     Active Substance: STIRIPENTOL
     Indication: Lennox-Gastaut syndrome
     Dosage: 500 AND 750MG IN TWO ?SEPARATE DOSES EACH DAY
     Route: 048
     Dates: start: 20230109, end: 20240715

REACTIONS (5)
  - Seizure [Unknown]
  - Malabsorption [Unknown]
  - Drug ineffective for unapproved indication [Unknown]
  - Product use in unapproved indication [Unknown]
  - Drug ineffective [Unknown]
